FAERS Safety Report 5729416-8 (Version None)
Quarter: 2008Q2

REPORT INFORMATION
  Report Type: 
  Country: None (occurrence: None)
  Receive Date: 20080430
  Receipt Date: 20080215
  Transmission Date: 20081010
  Serious: No
  Sender: FDA-Public Use
  Company Number: 2008PV034282

PATIENT
  Age: 24 Year
  Sex: Female

DRUGS (8)
  1. SYMLIN [Suspect]
     Indication: TYPE 1 DIABETES MELLITUS
     Dosage: 15 MCG;TID;SC; 60 MCG;TID;SC; 120 MCG;TID;SC; 90 MCG;TID;SC; 15 MCG;TID;SC
     Route: 058
     Dates: start: 20070101, end: 20070101
  2. SYMLIN [Suspect]
     Indication: TYPE 1 DIABETES MELLITUS
     Dosage: 15 MCG;TID;SC; 60 MCG;TID;SC; 120 MCG;TID;SC; 90 MCG;TID;SC; 15 MCG;TID;SC
     Route: 058
     Dates: start: 20070101, end: 20070101
  3. SYMLIN [Suspect]
     Indication: TYPE 1 DIABETES MELLITUS
     Dosage: 15 MCG;TID;SC; 60 MCG;TID;SC; 120 MCG;TID;SC; 90 MCG;TID;SC; 15 MCG;TID;SC
     Route: 058
     Dates: start: 20070401, end: 20070101
  4. SYMLIN [Suspect]
     Indication: TYPE 1 DIABETES MELLITUS
     Dosage: 15 MCG;TID;SC; 60 MCG;TID;SC; 120 MCG;TID;SC; 90 MCG;TID;SC; 15 MCG;TID;SC
     Route: 058
     Dates: start: 20070901, end: 20080101
  5. SYMLIN [Suspect]
     Indication: TYPE 1 DIABETES MELLITUS
     Dosage: 15 MCG;TID;SC; 60 MCG;TID;SC; 120 MCG;TID;SC; 90 MCG;TID;SC; 15 MCG;TID;SC
     Route: 058
     Dates: start: 20080208
  6. APIDRA [Concomitant]
  7. LEVEMIR [Concomitant]
  8. METFORMIN [Concomitant]

REACTIONS (1)
  - WEIGHT INCREASED [None]
